FAERS Safety Report 16180060 (Version 1)
Quarter: 2019Q2

REPORT INFORMATION
  Report Type: Spontaneous
  Country: FI (occurrence: FI)
  Receive Date: 20190410
  Receipt Date: 20190410
  Transmission Date: 20190711
  Serious: Yes (Other)
  Sender: FDA-Public Use
  Company Number: FI-JNJFOC-20190413547

PATIENT
  Age: 88 Year
  Sex: Female

DRUGS (10)
  1. VAGIFEM [Concomitant]
     Active Substance: ESTRADIOL
     Route: 065
  2. MAREVAN [Concomitant]
     Active Substance: WARFARIN SODIUM
     Indication: THROMBOSIS PROPHYLAXIS
     Route: 065
  3. THYROXIN [Concomitant]
     Active Substance: LEVOTHYROXINE
     Indication: HYPOTHYROIDISM
     Route: 048
  4. XARELTO [Suspect]
     Active Substance: RIVAROXABAN
     Indication: THROMBOSIS PROPHYLAXIS
     Route: 048
     Dates: start: 20190206, end: 20190308
  5. DIGOXIN ORION [Concomitant]
     Active Substance: DIGOXIN
     Indication: ATRIAL FIBRILLATION
     Route: 048
  6. EMCONCOR [Concomitant]
     Active Substance: BISOPROLOL FUMARATE
     Indication: ARRHYTHMIA
     Route: 048
  7. AMLODIPINE [Concomitant]
     Active Substance: AMLODIPINE BESYLATE
     Indication: HYPERTENSION
     Route: 048
  8. TRIMETOPRIM [Concomitant]
     Active Substance: TRIMETHOPRIM
     Indication: PROPHYLAXIS URINARY TRACT INFECTION
     Route: 048
  9. TEMAZEPAM. [Concomitant]
     Active Substance: TEMAZEPAM
     Indication: INSOMNIA
     Route: 065
  10. ROSUVASTATIN ACTAVIS [Concomitant]
     Active Substance: ROSUVASTATIN
     Indication: HYPERCHOLESTEROLAEMIA
     Route: 048

REACTIONS (1)
  - Renal failure [Not Recovered/Not Resolved]

NARRATIVE: CASE EVENT DATE: 20190206
